FAERS Safety Report 7827199-9 (Version None)
Quarter: 2011Q4

REPORT INFORMATION
  Report Type: 
  Country: None (occurrence: None)
  Receive Date: 20111020
  Receipt Date: 20111014
  Transmission Date: 20120403
  Serious: Yes (Hospitalization, Other)
  Sender: FDA-Public Use
  Company Number: US-AMGEN-USASP2011041806

PATIENT
  Age: 60 Year
  Sex: Male
  Weight: 129.25 kg

DRUGS (19)
  1. PREDNISONE [Concomitant]
  2. TYLENOL (CAPLET) [Concomitant]
  3. NPLATE [Suspect]
     Indication: IDIOPATHIC THROMBOCYTOPENIC PURPURA
     Route: 058
     Dates: start: 20081030
  4. DICYCLOMINE [Concomitant]
  5. RITUXIMAB [Concomitant]
     Indication: IDIOPATHIC THROMBOCYTOPENIC PURPURA
  6. IVIGLOB-EX [Concomitant]
     Indication: IDIOPATHIC THROMBOCYTOPENIC PURPURA
  7. FOLIC ACID [Concomitant]
  8. NORCO [Concomitant]
  9. NPLATE [Suspect]
  10. CORTICOSTEROIDS [Concomitant]
     Indication: IDIOPATHIC THROMBOCYTOPENIC PURPURA
  11. LEVAQUIN [Concomitant]
  12. OMEPRAZOLE [Concomitant]
  13. FUROSEMIDE [Concomitant]
  14. JANUVIA [Concomitant]
  15. BENADRYL [Concomitant]
  16. DECADRON [Concomitant]
  17. LANTUS [Concomitant]
  18. KLOR-CON [Concomitant]
  19. HUMULIN                            /00646001/ [Concomitant]

REACTIONS (7)
  - TYPE 2 DIABETES MELLITUS [None]
  - DEEP VEIN THROMBOSIS [None]
  - FOOT AMPUTATION [None]
  - PLATELET COUNT ABNORMAL [None]
  - ANAEMIA [None]
  - PERIPHERAL ISCHAEMIA [None]
  - LEUKOCYTOSIS [None]
